FAERS Safety Report 5708561-7 (Version None)
Quarter: 2008Q2

REPORT INFORMATION
  Report Type: 
  Country: None (occurrence: None)
  Receive Date: 20080417
  Receipt Date: 20080408
  Transmission Date: 20081010
  Serious: Yes (Other)
  Sender: FDA-Public Use
  Company Number: PHHY2008BR05401

PATIENT
  Sex: Female

DRUGS (1)
  1. ZELMAC [Suspect]
     Indication: ABDOMINAL DISTENSION
     Route: 048

REACTIONS (5)
  - ABDOMINAL DISTENSION [None]
  - BLADDER PAIN [None]
  - DISEASE PROGRESSION [None]
  - GASTRIC LAVAGE [None]
  - GROIN PAIN [None]
